FAERS Safety Report 5035052-1 (Version None)
Quarter: 2006Q2

REPORT INFORMATION
  Report Type: 
  Country: None (occurrence: None)
  Receive Date: 20060519
  Receipt Date: 20060322
  Transmission Date: 20061013
  Serious: No
  Sender: FDA-Public Use
  Company Number: TPA2006A00509

PATIENT
  Age: 46 Year
  Sex: Female
  Weight: 63.5036 kg

DRUGS (6)
  1. ROZEREM [Suspect]
     Indication: INSOMNIA
     Dosage: 8 MG, HS, PER ORAL
     Route: 048
     Dates: start: 20060321
  2. AMOXICILLIN (AMOXCILLIN) (500 MILLIGRAM) [Concomitant]
  3. NASACORT (TRIAMCINOLONE ACETONIDE) (NASAL DROPS (INCLUDING NASAL SPRAY [Concomitant]
  4. ALLEGRA (FEXOFENADINE HYDROCHLORIDE) (TABLETS) [Concomitant]
  5. DIFFERIN [Concomitant]
  6. AZELEX (AZELAIC ACID) [Concomitant]

REACTIONS (1)
  - INITIAL INSOMNIA [None]
